FAERS Safety Report 25410697 (Version 1)
Quarter: 2025Q2

REPORT INFORMATION
  Report Type: Spontaneous
  Country: US (occurrence: US)
  Receive Date: 20250609
  Receipt Date: 20250609
  Transmission Date: 20250716
  Serious: No
  Sender: NAARI PHARMA
  Company Number: US-NAARI PTE LIMITED-2024NP000097

PATIENT
  Age: 21 Year
  Sex: Female
  Weight: 72.6 kg

DRUGS (1)
  1. LEVONORGESTREL [Suspect]
     Active Substance: LEVONORGESTREL
     Indication: Post coital contraception
     Route: 048
     Dates: start: 20240927

REACTIONS (2)
  - Vaginal haemorrhage [Unknown]
  - Menstrual disorder [Unknown]

NARRATIVE: CASE EVENT DATE: 20241021
